FAERS Safety Report 6346182-6 (Version None)
Quarter: 2009Q3

REPORT INFORMATION
  Report Type: 
  Country: None (occurrence: None)
  Receive Date: 20090821
  Receipt Date: 20090707
  Transmission Date: 20100115
  Serious: No
  Sender: FDA-Public Use
  Company Number: 8048656

PATIENT
  Age: 47 Year
  Sex: Male

DRUGS (3)
  1. CIMZIA [Suspect]
     Indication: CROHN'S DISEASE
     Dosage: SC
     Route: 058
     Dates: start: 20090416
  2. VITAMIN B-12 [Concomitant]
  3. CHOLESTEROL MEDICATIONS [Concomitant]

REACTIONS (1)
  - RASH GENERALISED [None]
